FAERS Safety Report 23873538 (Version 1)
Quarter: 2024Q2

REPORT INFORMATION
  Report Type: Spontaneous
  Country: PL (occurrence: PL)
  Receive Date: 20240520
  Receipt Date: 20240520
  Transmission Date: 20240716
  Serious: Yes (Life-Threatening, Hospitalization)
  Sender: FDA-Public Use
  Company Number: None

PATIENT
  Age: 20 Year
  Sex: Female
  Weight: 60 kg

DRUGS (1)
  1. TEGRETOL [Suspect]
     Active Substance: CARBAMAZEPINE
     Indication: Toxicity to various agents
     Dosage: UNK
     Route: 048
     Dates: start: 20201004, end: 20201004

REACTIONS (1)
  - Coma [Unknown]

NARRATIVE: CASE EVENT DATE: 20201004
